FAERS Safety Report 10555164 (Version 1)
Quarter: 2014Q4

REPORT INFORMATION
  Report Type: Spontaneous
  Country: US (occurrence: None)
  Receive Date: 20141029
  Receipt Date: 20141029
  Transmission Date: 20150529
  Serious: Yes (Other)
  Sender: FDA-Public Use
  Company Number: None

PATIENT
  Age: 28 Year
  Sex: Female
  Weight: 56.25 kg

DRUGS (1)
  1. PAROXETINE [Suspect]
     Active Substance: PAROXETINE\PAROXETINE HYDROCHLORIDE
     Indication: DEPRESSION
     Dosage: 30 MG, ONCE DAILY, TAKEN BY MOUTH
     Route: 048
     Dates: start: 20120615, end: 20140912

REACTIONS (8)
  - Anxiety [None]
  - Vision blurred [None]
  - Lacrimation increased [None]
  - Fatigue [None]
  - Chills [None]
  - Drug withdrawal syndrome [None]
  - Anger [None]
  - Emotional disorder [None]

NARRATIVE: CASE EVENT DATE: 20141028
